FAERS Safety Report 9038968 (Version 1)
Quarter: 2013Q1

REPORT INFORMATION
  Report Type: Spontaneous
  Country: US (occurrence: None)
  Receive Date: 20130123
  Receipt Date: 20130123
  Transmission Date: 20140127
  Serious: Yes (Hospitalization)
  Sender: FDA-Public Use
  Company Number: None

PATIENT
  Age: 48 Year
  Sex: Male
  Weight: 98.6 kg

DRUGS (1)
  1. DEPO-TESTOSTERONE [Suspect]
     Indication: HYPOGONADISM
     Route: 030

REACTIONS (2)
  - Ischaemic cerebral infarction [None]
  - Transient ischaemic attack [None]
